FAERS Safety Report 9910201 (Version 1)
Quarter: 2014Q1

REPORT INFORMATION
  Report Type: Spontaneous
  Country: AT (occurrence: AT)
  Receive Date: 20140219
  Receipt Date: 20140219
  Transmission Date: 20141002
  Serious: Yes (Death)
  Sender: FDA-Public Use
  Company Number: AT-PFIZER INC-2014044555

PATIENT
  Age: 21 Year
  Sex: Male

DRUGS (3)
  1. MORPHINE SULFATE [Suspect]
     Dosage: TWICE
     Route: 042
  2. HEROIN [Suspect]
     Dosage: UNK
  3. ALCOHOL [Suspect]
     Dosage: UNK

REACTIONS (3)
  - Drug abuse [Fatal]
  - Toxicity to various agents [Fatal]
  - Respiratory paralysis [Fatal]
